FAERS Safety Report 11536941 (Version 2)
Quarter: 2015Q4

REPORT INFORMATION
  Report Type: Report from Study
  Country: JP (occurrence: JP)
  Receive Date: 20150922
  Receipt Date: 20151026
  Transmission Date: 20160304
  Serious: Yes (Hospitalization)
  Sender: FDA-Public Use
  Company Number: JP-TAKEDA-2014TUS007112

PATIENT
  Age: 76 Year
  Sex: Male
  Weight: 68.5 kg

DRUGS (6)
  1. GASTER [Concomitant]
     Active Substance: FAMOTIDINE
     Indication: GASTRITIS
     Dosage: 20 MG, QD
     Route: 048
     Dates: start: 20081105
  2. BAYASPIRIN [Concomitant]
     Active Substance: ASPIRIN
     Indication: ATRIAL FIBRILLATION
     Dosage: 100 MG, QD
     Route: 048
     Dates: start: 20081105
  3. MICAMLO [Concomitant]
     Active Substance: AMLODIPINE BESYLATE\TELMISARTAN
     Indication: HYPERTENSION
     Dosage: 1 DF, QD
     Route: 048
     Dates: start: 20081105
  4. FEBUXOSTAT. [Suspect]
     Active Substance: FEBUXOSTAT
     Indication: HYPERURICAEMIA
     Dosage: 20 MG, QD
     Route: 048
     Dates: start: 20121229
  5. LUPRAC [Concomitant]
     Active Substance: TORSEMIDE
     Indication: CARDIAC FAILURE CHRONIC
     Dosage: 8 MG, QD
     Route: 048
     Dates: start: 20081105
  6. ARTIST [Concomitant]
     Active Substance: CARVEDILOL
     Indication: CARDIAC FAILURE CHRONIC
     Dosage: 7.5 MG, QD
     Route: 048
     Dates: start: 20081105

REACTIONS (3)
  - Pneumonia [Recovering/Resolving]
  - Renal impairment [Recovered/Resolved]
  - Muscular weakness [Recovering/Resolving]

NARRATIVE: CASE EVENT DATE: 20130420
